FAERS Safety Report 12459592 (Version 2)
Quarter: 2016Q3

REPORT INFORMATION
  Report Type: Spontaneous
  Country: US (occurrence: US)
  Receive Date: 20160613
  Receipt Date: 20160728
  Transmission Date: 20161109
  Serious: Yes (Hospitalization, Other)
  Sender: FDA-Public Use
  Company Number: US-ACTAVIS-2016-12060

PATIENT
  Age: 22 Year
  Sex: Male

DRUGS (4)
  1. LEVETIRACETAM. [Concomitant]
     Active Substance: LEVETIRACETAM
     Indication: BACTERIAL INFECTION
     Dosage: 500 MG, BID
     Route: 048
  2. METRONIDAZOLE (WATSON LABORATORIES) [Suspect]
     Active Substance: METRONIDAZOLE
     Indication: BACTERIAL INFECTION
     Dosage: 750 MG, TID
     Route: 048
  3. CEFTRIAXONE. [Concomitant]
     Active Substance: CEFTRIAXONE
     Indication: BACTERIAL INFECTION
     Dosage: 2 MG, BID
     Route: 042
  4. LINEZOLID (UNKNOWN) [Suspect]
     Active Substance: LINEZOLID
     Indication: BACTERIAL INFECTION
     Dosage: 50 MG, BID
     Route: 048

REACTIONS (3)
  - Toxicity to various agents [Unknown]
  - Toxic encephalopathy [Unknown]
  - Neuropathy peripheral [Unknown]
